FAERS Safety Report 14301341 (Version 2)
Quarter: 2018Q1

REPORT INFORMATION
  Report Type: Spontaneous
  Country: GR (occurrence: GR)
  Receive Date: 20171219
  Receipt Date: 20180109
  Transmission Date: 20180509
  Serious: Yes (Hospitalization)
  Sender: FDA-Public Use
  Company Number: GR-JNJFOC-20171214795

PATIENT
  Age: 18 Year
  Sex: Male

DRUGS (3)
  1. RISPERDAL [Suspect]
     Active Substance: RISPERIDONE
     Indication: INTELLECTUAL DISABILITY
     Dosage: FOR YEARS
     Route: 065
  2. RISPERDAL [Suspect]
     Active Substance: RISPERIDONE
     Indication: INTELLECTUAL DISABILITY
     Dosage: EVERY MORNING
     Route: 065
     Dates: start: 201710
  3. RIVOTRIL [Interacting]
     Active Substance: CLONAZEPAM
     Indication: INTELLECTUAL DISABILITY
     Dosage: STRENGTH: 2.5 MG; 3 DROPS EACH, IN MORNING AND EVENING
     Route: 065
     Dates: start: 201710

REACTIONS (3)
  - Drug interaction [Recovered/Resolved]
  - Pulse absent [Recovered/Resolved]
  - Syncope [Recovered/Resolved]

NARRATIVE: CASE EVENT DATE: 20171209
